FAERS Safety Report 4795101-2 (Version None)
Quarter: 2005Q4

REPORT INFORMATION
  Report Type: 
  Country: None (occurrence: None)
  Receive Date: 20051012
  Receipt Date: 20051003
  Transmission Date: 20060501
  Serious: Yes (Hospitalization)
  Sender: FDA-Public Use
  Company Number: GB-BRISTOL-MYERS SQUIBB COMPANY-13128673

PATIENT
  Age: 74 Year
  Sex: Female

DRUGS (11)
  1. WARFARIN SODIUM [Suspect]
     Indication: ATRIAL FIBRILLATION
     Route: 048
     Dates: end: 20050826
  2. ASPIRIN [Suspect]
     Route: 048
     Dates: end: 20050826
  3. CARBAMAZEPINE [Concomitant]
  4. GAVISCON [Concomitant]
  5. SODIUM CHLORIDE [Concomitant]
  6. CALCICHEW [Concomitant]
  7. OILATUM [Concomitant]
  8. ACETAMINOPHEN W/ CODEINE [Concomitant]
  9. BUMETANIDE [Concomitant]
  10. RAMIPRIL [Concomitant]
  11. DIGOXIN [Concomitant]

REACTIONS (6)
  - DIZZINESS [None]
  - HIATUS HERNIA [None]
  - MELAENA [None]
  - OESOPHAGITIS [None]
  - RECTAL HAEMORRHAGE [None]
  - ULCER [None]
